FAERS Safety Report 4527824-4 (Version None)
Quarter: 2004Q4

REPORT INFORMATION
  Report Type: 
  Country: None (occurrence: None)
  Receive Date: 20041123
  Receipt Date: 20040914
  Transmission Date: 20050328
  Serious: Yes (Life-Threatening, Other)
  Sender: FDA-Public Use
  Company Number: ATO-04-0818(0)

PATIENT
  Age: 47 Year
  Sex: Male
  Weight: 90.7194 kg

DRUGS (1)
  1. TRISENOX [Suspect]
     Indication: MALIGNANT MELANOMA
     Dosage: UNK (0.25 MG/KG, BIW), IVI
     Route: 042
     Dates: end: 20040831

REACTIONS (4)
  - CONTUSION [None]
  - INCREASED TENDENCY TO BRUISE [None]
  - NASOPHARYNGITIS [None]
  - PLATELET COUNT DECREASED [None]
